FAERS Safety Report 4738259-3 (Version None)
Quarter: 2005Q3

REPORT INFORMATION
  Report Type: 
  Country: None (occurrence: None)
  Receive Date: 20050808
  Receipt Date: 20050808
  Transmission Date: 20060218
  Serious: No
  Sender: FDA-Public Use
  Company Number: None

PATIENT
  Age: 3 Year

DRUGS (1)
  1. PHENOL [Suspect]
     Dosage: LIQUID

REACTIONS (4)
  - ACCIDENTAL EXPOSURE [None]
  - ERYTHEMA [None]
  - SKIN IRRITATION [None]
  - STOMATITIS [None]
